FAERS Safety Report 8606030-8 (Version None)
Quarter: 2012Q3

REPORT INFORMATION
  Report Type: 
  Country: None (occurrence: None)
  Receive Date: 20120820
  Receipt Date: 20120809
  Transmission Date: 20120928
  Serious: Yes (Hospitalization)
  Sender: FDA-Public Use
  Company Number: IT-ROCHE-1099972

PATIENT
  Sex: Male

DRUGS (8)
  1. FOLINA [Concomitant]
     Indication: RECTAL CANCER STAGE IV
     Route: 041
     Dates: start: 20120202, end: 20120614
  2. SCOPOLAMINE [Concomitant]
     Indication: ANALGESIC THERAPY
     Route: 055
     Dates: start: 20120202, end: 20120614
  3. RANITIDINE HCL [Concomitant]
     Indication: PROPHYLAXIS AGAINST GASTROINTESTINAL ULCER
     Route: 042
     Dates: start: 20120202, end: 20120614
  4. FLUOROURACIL [Concomitant]
     Indication: RECTAL CANCER STAGE IV
     Route: 040
     Dates: start: 20120202, end: 20120614
  5. ZOFRAN [Concomitant]
     Indication: PROPHYLAXIS OF NAUSEA AND VOMITING
     Route: 041
     Dates: start: 20120202, end: 20120614
  6. AVASTIN [Suspect]
     Indication: RECTAL CANCER STAGE IV
     Route: 041
     Dates: start: 20120217, end: 20120614
  7. BETAMETHASONE SODIUM PHOSPHATE [Concomitant]
     Indication: ANAPHYLAXIS PROPHYLAXIS
     Route: 041
     Dates: start: 20120202, end: 20120614
  8. OXALIPLATIN [Concomitant]
     Indication: RECTAL CANCER STAGE IV
     Route: 041
     Dates: start: 20120202, end: 20120614

REACTIONS (2)
  - CEREBRAL ISCHAEMIA [None]
  - PARALYSIS [None]
